FAERS Safety Report 16019507 (Version 1)
Quarter: 2019Q1

REPORT INFORMATION
  Report Type: Spontaneous
  Country: GB (occurrence: GB)
  Receive Date: 20190228
  Receipt Date: 20190228
  Transmission Date: 20190418
  Serious: Yes (Life-Threatening)
  Sender: FDA-Public Use
  Company Number: GB-TEVA-2019-GB-1018117

PATIENT
  Age: 38 Year
  Sex: Female
  Weight: 40 kg

DRUGS (9)
  1. FERROUS FUMARATE [Concomitant]
     Active Substance: FERROUS FUMARATE
     Dosage: 2 DOSAGE FORMS DAILY;
     Dates: start: 20181218, end: 20190115
  2. EPLERENONE. [Concomitant]
     Active Substance: EPLERENONE
     Dates: start: 20180813
  3. CO-AMOXICLAV [Suspect]
     Active Substance: AMOXICILLIN\CLAVULANATE POTASSIUM
     Dosage: 3 DOSAGE FORMS DAILY;
     Route: 065
     Dates: start: 20190125
  4. SALBUTAMOL [Concomitant]
     Active Substance: ALBUTEROL
     Dates: start: 20171003, end: 20181218
  5. BISOPROLOL [Concomitant]
     Active Substance: BISOPROLOL
     Dosage: 1 DOSAGE FORMS DAILY;
     Dates: start: 20180813
  6. SACUBITRIL [Concomitant]
     Active Substance: SACUBITRIL
     Dosage: 2 DOSAGE FORMS DAILY;
     Dates: start: 20190118
  7. DOXYCYCLINE. [Concomitant]
     Active Substance: DOXYCYCLINE
     Dosage: 1 DOSAGE FORMS DAILY; TAKE TWO NOW AND THEN AS ABOVE.
     Dates: start: 20190128, end: 20190204
  8. PARACETAMOL [Concomitant]
     Active Substance: ACETAMINOPHEN
     Dosage: TAKE 1 OR 2, 4 TIMES PER DAY.
     Dates: start: 20190125
  9. EPADERM [Concomitant]
     Active Substance: MINERAL OIL\PETROLATUM\WAX, EMULSIFYING
     Dosage: USE AS DIRECTED.
     Dates: start: 20180403

REACTIONS (2)
  - Pruritus [Unknown]
  - Periorbital swelling [Recovered/Resolved]
